FAERS Safety Report 18397831 (Version 1)
Quarter: 2020Q4

REPORT INFORMATION
  Report Type: Spontaneous
  Country: MY (occurrence: MY)
  Receive Date: 20201019
  Receipt Date: 20201019
  Transmission Date: 20210114
  Serious: Yes (Other)
  Sender: FDA-Public Use
  Company Number: MY-B.I. PHARMACEUTICALS,INC./RIDGEFIELD-2020-BI-054459

PATIENT

DRUGS (2)
  1. GILOTRIF [Suspect]
     Active Substance: AFATINIB
     Indication: NON-SMALL CELL LUNG CANCER
     Dosage: 20MG OD
  2. GILOTRIF [Suspect]
     Active Substance: AFATINIB
     Dosage: 40MG OD

REACTIONS (2)
  - Metastases to central nervous system [Unknown]
  - Therapy non-responder [Unknown]
